FAERS Safety Report 16234698 (Version 1)
Quarter: 2019Q2

REPORT INFORMATION
  Report Type: Spontaneous
  Country: US (occurrence: US)
  Receive Date: 20190424
  Receipt Date: 20190424
  Transmission Date: 20190711
  Serious: No
  Sender: FDA-Public Use
  Company Number: US-BAYER-2019-083110

PATIENT
  Age: 60 Year
  Sex: Female
  Weight: 71 kg

DRUGS (3)
  1. CLARITIN [Suspect]
     Active Substance: LORATADINE
     Indication: NASOPHARYNGITIS
  2. MARIJUANA [Concomitant]
     Active Substance: CANNABIS SATIVA SUBSP. INDICA TOP
     Indication: PAIN
     Dosage: UNK
  3. CLARITIN [Suspect]
     Active Substance: LORATADINE
     Indication: HYPERSENSITIVITY
     Dosage: 1 DF

REACTIONS (2)
  - Drug intolerance [Unknown]
  - Drug ineffective [Unknown]
